FAERS Safety Report 12404801 (Version 1)
Quarter: 2016Q2

REPORT INFORMATION
  Report Type: Spontaneous
  Country: US (occurrence: US)
  Receive Date: 20160525
  Receipt Date: 20160525
  Transmission Date: 20160815
  Serious: Yes (Other)
  Sender: FDA-Public Use
  Company Number: US-PROCTER_AND_GAMBLE-GS16061872

PATIENT

DRUGS (1)
  1. CREST [Suspect]
     Active Substance: SODIUM FLUORIDE
     Dosage: 3 TUBES
     Route: 048

REACTIONS (3)
  - Product use issue [Unknown]
  - Exposure via ingestion [Unknown]
  - Loss of consciousness [Recovered/Resolved]
